FAERS Safety Report 18217480 (Version 1)
Quarter: 2020Q3

REPORT INFORMATION
  Report Type: Spontaneous
  Country: JP (occurrence: JP)
  Receive Date: 20200901
  Receipt Date: 20200901
  Transmission Date: 20201103
  Serious: Yes (Other)
  Sender: FDA-Public Use
  Company Number: JP-MYLANLABS-2020M1075038

PATIENT
  Age: 82 Year
  Sex: Female
  Weight: 64.8 kg

DRUGS (22)
  1. EDIROL [Suspect]
     Active Substance: ELDECALCITOL
     Indication: VITAMIN SUPPLEMENTATION
     Dosage: 0.75 MICROGRAM, QD
     Route: 065
     Dates: start: 20191115
  2. NEXIUM [Suspect]
     Active Substance: ESOMEPRAZOLE MAGNESIUM
     Indication: GASTRIC ULCER
     Dosage: 20 MILLIGRAM, QD
     Route: 048
     Dates: start: 20200204
  3. WARFARIN                           /00014803/ [Suspect]
     Active Substance: WARFARIN
     Indication: ANTICOAGULANT THERAPY
     Dosage: 1 MILLIGRAM, QD
     Route: 048
     Dates: start: 20150515
  4. ALFACALCIDOL [Suspect]
     Active Substance: ALFACALCIDOL
     Indication: VITAMIN SUPPLEMENTATION
     Dosage: 1 MICROGRAM, QD
     Route: 048
  5. MINODRONIC ACID [Suspect]
     Active Substance: MINODRONIC ACID
     Indication: OSTEOPOROSIS
     Dosage: 50 MILLIGRAM, MONTHLY
     Route: 065
  6. BETAHISTINE MESILATE [Suspect]
     Active Substance: BETAHISTINE MESILATE
     Indication: DIZZINESS
     Dosage: 6 MILLIGRAM, TID
     Route: 048
     Dates: start: 20101105
  7. SODIUM RISEDRONATE [Suspect]
     Active Substance: RISEDRONATE SODIUM
     Indication: OSTEOPOROSIS
     Dosage: 17.5 MILLIGRAM, QW
     Route: 048
     Dates: start: 20191115
  8. BISOPROLOL FUMARATE. [Suspect]
     Active Substance: BISOPROLOL FUMARATE
     Indication: CARDIAC FAILURE CHRONIC
     Dosage: 2.5 MILLIGRAM, QD
     Route: 048
     Dates: start: 20130417
  9. LANSOPRAZOLE. [Suspect]
     Active Substance: LANSOPRAZOLE
     Indication: PRODUCT USED FOR UNKNOWN INDICATION
     Route: 048
  10. AMITIZA [Suspect]
     Active Substance: LUBIPROSTONE
     Indication: CONSTIPATION
     Dosage: 24 MICROGRAM, BID
     Route: 048
     Dates: start: 20200116
  11. TELMISARTAN OD [Suspect]
     Active Substance: TELMISARTAN
     Indication: HYPERTENSION
     Dosage: 40 MILLIGRAM, QD
     Route: 048
     Dates: start: 20110325
  12. LYRICA [Suspect]
     Active Substance: PREGABALIN
     Indication: NEURALGIA
     Dosage: 150 MILLIGRAM, BID
     Route: 048
     Dates: start: 20200409, end: 20200722
  13. NEXIUM [Suspect]
     Active Substance: ESOMEPRAZOLE MAGNESIUM
     Indication: DUODENAL ULCER HAEMORRHAGE
  14. BAYASPIRIN [Suspect]
     Active Substance: ASPIRIN
     Indication: PRODUCT USED FOR UNKNOWN INDICATION
     Route: 048
  15. CELECOX [Suspect]
     Active Substance: CELECOXIB
     Indication: PRODUCT USED FOR UNKNOWN INDICATION
     Route: 048
  16. MIYA?BM [Suspect]
     Active Substance: CLOSTRIDIUM BUTYRICUM SPORES STRAIN M-55
     Indication: PROBIOTIC THERAPY
     Dosage: 1 GRAM, TID
     Route: 048
     Dates: start: 20150815
  17. TORASEMIDE [Suspect]
     Active Substance: TORSEMIDE
     Indication: DIURETIC THERAPY
     Dosage: 2 MILLIGRAM, QD
     Route: 048
     Dates: start: 20170904
  18. AMLODIPINE                         /00972402/ [Suspect]
     Active Substance: AMLODIPINE BESYLATE
     Indication: HYPERTENSION
     Dosage: 5 MILLIGRAM, QD
     Route: 048
     Dates: start: 20120516
  19. WARFARIN                           /00014803/ [Suspect]
     Active Substance: WARFARIN
     Dosage: UNK
     Route: 048
  20. SENNOSIDE                          /00571901/ [Suspect]
     Active Substance: SENNOSIDES A AND B
     Indication: CONSTIPATION
     Dosage: UNK, PRN
     Route: 065
  21. PARACETAMOL/TRAMADOL [Suspect]
     Active Substance: ACETAMINOPHEN\TRAMADOL
     Indication: PAIN
     Dosage: 1 DOSAGE FORM, QID
     Route: 048
     Dates: start: 20200111
  22. PROCYLIN [Suspect]
     Active Substance: BERAPROST SODIUM
     Indication: ANTIPLATELET THERAPY
     Route: 048

REACTIONS (10)
  - Physical deconditioning [Unknown]
  - Constipation [Unknown]
  - Immobilisation syndrome [Unknown]
  - Malaise [Unknown]
  - Haemorrhoids [Recovered/Resolved]
  - Nausea [Unknown]
  - Decreased appetite [Recovered/Resolved]
  - Duodenal ulcer haemorrhage [Unknown]
  - Gastric ulcer [Unknown]
  - Neuralgia [Unknown]

NARRATIVE: CASE EVENT DATE: 20200122
